FAERS Safety Report 23470291 (Version 1)
Quarter: 2024Q1

REPORT INFORMATION
  Report Type: Report from Study
  Country: US (occurrence: US)
  Receive Date: 20240202
  Receipt Date: 20240202
  Transmission Date: 20240410
  Serious: No
  Sender: FDA-Public Use
  Company Number: US-AGIOS-2401US03622

PATIENT
  Sex: Male

DRUGS (1)
  1. MITAPIVAT [Suspect]
     Active Substance: MITAPIVAT
     Indication: Product used for unknown indication
     Dosage: 5 MILLIGRAM
     Route: 048
     Dates: start: 20240120

REACTIONS (3)
  - Fatigue [Not Recovered/Not Resolved]
  - Somnolence [Not Recovered/Not Resolved]
  - Product storage error [Not Recovered/Not Resolved]
